FAERS Safety Report 6782618-4 (Version None)
Quarter: 2010Q2

REPORT INFORMATION
  Report Type: 
  Country: None (occurrence: None)
  Receive Date: 20100621
  Receipt Date: 20100614
  Transmission Date: 20101027
  Serious: Yes (Hospitalization)
  Sender: FDA-Public Use
  Company Number: FR-BRISTOL-MYERS SQUIBB COMPANY-15148414

PATIENT
  Age: 77 Year
  Sex: Male

DRUGS (11)
  1. COUMADIN [Suspect]
     Dosage: INTERRUPTED ON 08-APR-2010
     Route: 048
     Dates: start: 20090101
  2. DAKTARIN [Suspect]
     Indication: ORAL FUNGAL INFECTION
     Dosage: BUCCAL GEL
     Dates: start: 20100326, end: 20100408
  3. DIFFU-K [Suspect]
  4. LASIX [Concomitant]
  5. PRAVASTATIN [Concomitant]
  6. KARDEGIC [Concomitant]
  7. SERETIDE [Concomitant]
  8. SPIRIVA [Concomitant]
  9. EXFORGE [Concomitant]
  10. CORDARONE [Concomitant]
  11. INIPOMP [Concomitant]

REACTIONS (4)
  - INTERNATIONAL NORMALISED RATIO INCREASED [None]
  - NAUSEA [None]
  - OVERDOSE [None]
  - VOMITING [None]
